FAERS Safety Report 5792686-4 (Version None)
Quarter: 2008Q2

REPORT INFORMATION
  Report Type: 
  Country: None (occurrence: None)
  Receive Date: 20080624
  Receipt Date: 20080610
  Transmission Date: 20081010
  Serious: Yes (Hospitalization)
  Sender: FDA-Public Use
  Company Number: 2008AL005246

PATIENT
  Age: 59 Year
  Sex: Male
  Weight: 122.4712 kg

DRUGS (2)
  1. DIGOXIN [Suspect]
     Indication: HEART VALVE REPLACEMENT
     Dosage: 0.25MG DAILY PO
     Route: 048
  2. INSULIN [Concomitant]

REACTIONS (4)
  - ARRHYTHMIA [None]
  - CEREBROVASCULAR ACCIDENT [None]
  - DYSPEPSIA [None]
  - HEART RATE INCREASED [None]
